FAERS Safety Report 23698607 (Version 3)
Quarter: 2024Q2

REPORT INFORMATION
  Report Type: Spontaneous
  Country: US (occurrence: US)
  Receive Date: 20240402
  Receipt Date: 20240618
  Transmission Date: 20240715
  Serious: No
  Sender: FDA-Public Use
  Company Number: US-SA-SAC20240326000851

PATIENT
  Age: 18 Year
  Sex: Male

DRUGS (2)
  1. TZIELD [Suspect]
     Active Substance: TEPLIZUMAB-MZWV
     Dosage: UNK
     Route: 065
     Dates: start: 202306
  2. IBUPROFEN [Concomitant]
     Active Substance: IBUPROFEN
     Dosage: UNK
     Dates: start: 2023

REACTIONS (7)
  - Pain [Unknown]
  - Peripheral swelling [Unknown]
  - Influenza like illness [Unknown]
  - Burning sensation [Unknown]
  - Rash pruritic [Recovering/Resolving]
  - Headache [Unknown]
  - Rash erythematous [Unknown]

NARRATIVE: CASE EVENT DATE: 20230101
